FAERS Safety Report 7554638-3 (Version None)
Quarter: 2011Q2

REPORT INFORMATION
  Report Type: 
  Country: None (occurrence: None)
  Receive Date: 20110617
  Receipt Date: 20110311
  Transmission Date: 20111010
  Serious: No
  Sender: FDA-Public Use
  Company Number: US-MYLANLABS-2011S1005517

PATIENT
  Age: 7 Decade
  Sex: Female

DRUGS (4)
  1. HYDROCHLOROTHIAZIDE [Concomitant]
     Indication: BLOOD PRESSURE
  2. NIFEDIPINE [Suspect]
     Indication: BLOOD PRESSURE
     Route: 048
  3. POTASSIUM [Concomitant]
  4. DIOVAN [Concomitant]

REACTIONS (3)
  - MEDICATION RESIDUE [None]
  - BLOOD PRESSURE INCREASED [None]
  - DRUG INEFFECTIVE [None]
